FAERS Safety Report 23654346 (Version 1)
Quarter: 2024Q1

REPORT INFORMATION
  Report Type: Spontaneous
  Country: US (occurrence: US)
  Receive Date: 20240320
  Receipt Date: 20240320
  Transmission Date: 20240409
  Serious: Yes (Other)
  Sender: FDA-Public Use
  Company Number: US-BRISTOL-MYERS SQUIBB COMPANY-2024-044212

PATIENT
  Age: 65 Year
  Sex: Male

DRUGS (1)
  1. REVLIMID [Suspect]
     Active Substance: LENALIDOMIDE
     Indication: Plasma cell myeloma in remission
     Route: 048

REACTIONS (7)
  - Oropharyngeal pain [Unknown]
  - Ear pain [Unknown]
  - Sinus disorder [Unknown]
  - Fatigue [Unknown]
  - Decreased appetite [Unknown]
  - Dysphagia [Unknown]
  - Meningitis [Unknown]
